FAERS Safety Report 5822487-X (Version None)
Quarter: 2008Q3

REPORT INFORMATION
  Report Type: 
  Country: None (occurrence: None)
  Receive Date: 20080722
  Receipt Date: 20080711
  Transmission Date: 20090109
  Serious: Yes (Other)
  Sender: FDA-Public Use
  Company Number: STI-2008-02398

PATIENT
  Sex: Female

DRUGS (1)
  1. 516C CLINDOXYL GEL (CLINDAMYCIN + BENZOYL PEROXIDE) (BENZOYL PEROXIDE [Suspect]
     Indication: ACNE
     Dosage: APPLICATION ALL OVER FACE
     Dates: start: 20080707

REACTIONS (4)
  - APPLICATION SITE ERYTHEMA [None]
  - APPLICATION SITE SWELLING [None]
  - APPLICATION SITE VESICLES [None]
  - PURULENCE [None]
